FAERS Safety Report 14673040 (Version 1)
Quarter: 2018Q1

REPORT INFORMATION
  Report Type: Spontaneous
  Country: DE (occurrence: DE)
  Receive Date: 20180323
  Receipt Date: 20180323
  Transmission Date: 20180509
  Serious: Yes (Life-Threatening, Hospitalization)
  Sender: FDA-Public Use
  Company Number: DE-WEST-WARD PHARMACEUTICALS CORP.-DE-H14001-18-02104

PATIENT
  Age: 74 Year
  Sex: Male
  Weight: 87 kg

DRUGS (8)
  1. APREPITANT. [Concomitant]
     Active Substance: APREPITANT
     Indication: BRONCHIAL CARCINOMA
     Route: 048
     Dates: start: 20150625
  2. DEXAMETHASONE. [Concomitant]
     Active Substance: DEXAMETHASONE
     Indication: BRONCHIAL CARCINOMA
     Route: 048
     Dates: start: 20150625
  3. ALIMTA [Suspect]
     Active Substance: PEMETREXED DISODIUM
     Indication: BRONCHIAL CARCINOMA
     Route: 042
     Dates: start: 20150625
  4. CARBOPLATIN. [Suspect]
     Active Substance: CARBOPLATIN
     Indication: BRONCHIAL CARCINOMA
     Route: 042
     Dates: start: 20150625
  5. CISPLATIN. [Suspect]
     Active Substance: CISPLATIN
     Indication: BRONCHIAL CARCINOMA
     Route: 042
     Dates: start: 20150625
  6. DIAZEPAM. [Concomitant]
     Active Substance: DIAZEPAM
     Indication: BRONCHIAL CARCINOMA
     Route: 048
     Dates: start: 20150625
  7. GRANISETRON [Concomitant]
     Active Substance: GRANISETRON
     Indication: BRONCHIAL CARCINOMA
     Route: 048
     Dates: start: 20150625
  8. AVASTIN [Suspect]
     Active Substance: BEVACIZUMAB
     Indication: BRONCHIAL CARCINOMA
     Route: 042
     Dates: start: 20150806, end: 20151008

REACTIONS (3)
  - Ileus [Recovered/Resolved]
  - Pneumonia [Recovered/Resolved]
  - Transient ischaemic attack [Recovered/Resolved]

NARRATIVE: CASE EVENT DATE: 20150708
